FAERS Safety Report 5271262-6 (Version None)
Quarter: 2007Q1

REPORT INFORMATION
  Report Type: 
  Country: None (occurrence: None)
  Receive Date: 20070315
  Receipt Date: 20070228
  Transmission Date: 20070707
  Serious: Yes (Other)
  Sender: FDA-Public Use
  Company Number: 2007RR-06066

PATIENT
  Age: 40 Year
  Sex: Male

DRUGS (5)
  1. AMOXICILLIN AND CLAVULANATE POTASSIUM [Suspect]
     Indication: PNEUMONIA
     Dosage: INTRAVENOUS, 625 MG, ORAL
     Route: 042
     Dates: start: 20070129, end: 20070131
  2. AMOXICILLIN AND CLAVULANATE POTASSIUM [Suspect]
     Indication: PNEUMONIA
     Dosage: INTRAVENOUS, 625 MG, ORAL
     Route: 042
     Dates: start: 20070131, end: 20070202
  3. AMLODIPINE MALEATE [Concomitant]
  4. BENDROFLUMETHAZIADE [Concomitant]
  5. PERINDOPRIL ERBUMINE [Concomitant]

REACTIONS (1)
  - HEPATITIS [None]
